FAERS Safety Report 14867303 (Version 2)
Quarter: 2018Q3

REPORT INFORMATION
  Report Type: Spontaneous
  Country: US (occurrence: US)
  Receive Date: 20180508
  Receipt Date: 20180810
  Transmission Date: 20181010
  Serious: No
  Sender: FDA-Public Use
  Company Number: US-ALKERMES INC.-ALK-2018-001627

PATIENT
  Age: 52 Year
  Sex: Female

DRUGS (1)
  1. VIVITROL [Suspect]
     Active Substance: NALTREXONE
     Indication: DRUG DEPENDENCE
     Dosage: 380 MG, QMO
     Route: 030

REACTIONS (18)
  - Chest pain [Unknown]
  - Myalgia [Unknown]
  - Pruritus [Unknown]
  - Weight increased [Not Recovered/Not Resolved]
  - Confusional state [Unknown]
  - Dizziness [Not Recovered/Not Resolved]
  - Arthralgia [Not Recovered/Not Resolved]
  - Headache [Unknown]
  - Dyspnoea [Unknown]
  - Swelling [Not Recovered/Not Resolved]
  - Depression [Unknown]
  - Oral pain [Unknown]
  - Nausea [Recovered/Resolved]
  - Malaise [Unknown]
  - Abdominal pain [Unknown]
  - Anxiety [Unknown]
  - Panic attack [Unknown]
  - Insomnia [Unknown]

NARRATIVE: CASE EVENT DATE: 2018
